FAERS Safety Report 17591045 (Version 1)
Quarter: 2020Q3

REPORT INFORMATION
  Report Type: Report from Study
  Country: GB (occurrence: GB)
  Receive Date: 20200327
  Receipt Date: 20200327
  Transmission Date: 20201105
  Serious: Yes (Hospitalization)
  Sender: FDA-Public Use
  Company Number: GB-TEVA-2020-GB-1215027

PATIENT
  Age: 67 Year
  Sex: Female
  Weight: 71 kg

DRUGS (5)
  1. GEMCITABINE. [Suspect]
     Active Substance: GEMCITABINE
     Indication: ENDOMETRIAL ADENOCARCINOMA
     Dosage: 1938 MG ON DAY 1 AND DAY 8
     Route: 042
     Dates: start: 20180717, end: 20181119
  2. DALTEPARIN [Concomitant]
     Active Substance: DALTEPARIN
     Dates: start: 20190105
  3. NUMIDARGISTAT. [Suspect]
     Active Substance: NUMIDARGISTAT
     Indication: ENDOMETRIAL ADENOCARCINOMA
     Dosage: 200 MILLIGRAM DAILY;
     Route: 048
     Dates: start: 20180717, end: 20181209
  4. DALTEPARIN [Concomitant]
     Active Substance: DALTEPARIN
     Dates: start: 20180828, end: 201901
  5. CISPLATIN. [Suspect]
     Active Substance: CISPLATIN
     Indication: ENDOMETRIAL ADENOCARCINOMA
     Dosage: 47 MG ON DAY 1 AND DAY 8
     Route: 042
     Dates: start: 20180717, end: 20181119

REACTIONS (4)
  - Nausea [Recovered/Resolved]
  - Decreased appetite [Recovered/Resolved]
  - Diarrhoea [Recovered/Resolved]
  - Upper gastrointestinal haemorrhage [Recovered/Resolved]

NARRATIVE: CASE EVENT DATE: 20190103
